FAERS Safety Report 8063917-5 (Version None)
Quarter: 2012Q1

REPORT INFORMATION
  Report Type: 
  Country: None (occurrence: None)
  Receive Date: 20120123
  Receipt Date: 20120116
  Transmission Date: 20120608
  Serious: Yes (Hospitalization, Other)
  Sender: FDA-Public Use
  Company Number: BR-PFIZER INC-2012012638

PATIENT
  Age: 67 Year
  Sex: Male

DRUGS (2)
  1. XALATAN [Suspect]
     Indication: GLAUCOMA
     Dosage: 3 UG, 1X/DAY (1 DROP IN EACH EYE 1 X/DAY)
     Route: 047
     Dates: start: 20070116, end: 20100101
  2. COSOPT [Concomitant]
     Indication: GLAUCOMA
     Dosage: UNK
     Dates: start: 20050101

REACTIONS (3)
  - RETINAL DETACHMENT [None]
  - GLAUCOMA [None]
  - INTRAOCULAR PRESSURE INCREASED [None]
